FAERS Safety Report 25569769 (Version 2)
Quarter: 2025Q4

REPORT INFORMATION
  Report Type: Report from Study
  Country: EU (occurrence: EU)
  Receive Date: 20250717
  Receipt Date: 20251105
  Transmission Date: 20260117
  Serious: No
  Sender: BIOGEN
  Company Number: EU-BIOGEN-2025BI01317320

PATIENT
  Age: 30 Year
  Sex: Male

DRUGS (1)
  1. OMAVELOXOLONE [Suspect]
     Active Substance: OMAVELOXOLONE
     Indication: Friedreich^s ataxia
     Dosage: DOSAGE TEXT: 150MG/DAY
     Dates: start: 202403

REACTIONS (1)
  - Retinal tear [Not Recovered/Not Resolved]

NARRATIVE: CASE EVENT DATE: 20250601
